FAERS Safety Report 4365350-6 (Version None)
Quarter: 2004Q2

REPORT INFORMATION
  Report Type: 
  Country: None (occurrence: None)
  Receive Date: 20040520
  Receipt Date: 20040506
  Transmission Date: 20050107
  Serious: Yes (Congenital Anomaly)
  Sender: FDA-Public Use
  Company Number: MK200405-0069-1

PATIENT
  Sex: Female

DRUGS (1)
  1. TOFRANIL TAB [Suspect]
     Dosage: 225MG, DAILY
     Dates: end: 20040427

REACTIONS (3)
  - DRUG EXPOSURE DURING PREGNANCY [None]
  - MATERNAL DRUGS AFFECTING FOETUS [None]
  - TRISOMY 21 [None]
